FAERS Safety Report 8413257-7 (Version None)
Quarter: 2012Q2

REPORT INFORMATION
  Report Type: 
  Country: None (occurrence: None)
  Receive Date: 20120605
  Receipt Date: 20120530
  Transmission Date: 20120825
  Serious: Yes (Congenital Anomaly, Other)
  Sender: FDA-Public Use
  Company Number: US-PFIZER INC-2012132215

PATIENT
  Sex: Male
  Weight: 3.49 kg

DRUGS (3)
  1. ZOLOFT [Suspect]
     Dosage: UNK
     Route: 064
  2. CHANTIX [Concomitant]
     Dosage: UNK
     Route: 064
  3. MULTI-VITAMINS [Concomitant]
     Dosage: ONE DAILY
     Route: 064
     Dates: start: 20110101

REACTIONS (3)
  - MATERNAL EXPOSURE TIMING UNSPECIFIED [None]
  - CLEFT LIP AND PALATE [None]
  - DEAFNESS [None]
